FAERS Safety Report 6182291-2 (Version None)
Quarter: 2009Q2

REPORT INFORMATION
  Report Type: 
  Country: None (occurrence: None)
  Receive Date: 20090507
  Receipt Date: 20090505
  Transmission Date: 20091009
  Serious: Yes (Other)
  Sender: FDA-Public Use
  Company Number: ES-BRISTOL-MYERS SQUIBB COMPANY-14611396

PATIENT
  Age: 37 Year
  Sex: Female

DRUGS (1)
  1. BARACLUDE ORAL SOLN [Suspect]
     Indication: HEPATITIS B
     Dosage: 1DF=0.05MG/ML 210ML. INTERRUPTED ON 12-MAR-2009 AND RESTARTED ON 16-MAR-2009
     Route: 048
     Dates: start: 20081217

REACTIONS (1)
  - HAEMOLYTIC ANAEMIA [None]
